FAERS Safety Report 13290618 (Version 1)
Quarter: 2017Q1

REPORT INFORMATION
  Report Type: Spontaneous
  Country: US (occurrence: US)
  Receive Date: 20170302
  Receipt Date: 20170302
  Transmission Date: 20170428
  Serious: Yes (Hospitalization, Other)
  Sender: FDA-Public Use
  Company Number: US-TEVA-743169USA

PATIENT
  Age: 3 Decade
  Sex: Male

DRUGS (2)
  1. FENTANYL. [Suspect]
     Active Substance: FENTANYL
     Route: 065
  2. ETIZOLAM [Suspect]
     Active Substance: ETIZOLAM
     Route: 065

REACTIONS (5)
  - Pulmonary oedema [Recovered/Resolved]
  - Counterfeit drug administered [Recovered/Resolved]
  - Depressed level of consciousness [Recovered/Resolved]
  - Drug abuse [Recovered/Resolved]
  - Cardiac failure [Recovered/Resolved]
